FAERS Safety Report 15609250 (Version 1)
Quarter: 2018Q4

REPORT INFORMATION
  Report Type: Report from Study
  Country: US (occurrence: US)
  Receive Date: 20181112
  Receipt Date: 20181112
  Transmission Date: 20190205
  Serious: Yes (Hospitalization)
  Sender: FDA-Public Use
  Company Number: US-ACTELION-A-NJ2018-172473

PATIENT
  Age: 66 Year
  Sex: Male
  Weight: 91.61 kg

DRUGS (4)
  1. OPSUMIT [Suspect]
     Active Substance: MACITENTAN
     Indication: PULMONARY HYPERTENSION
     Dosage: 10 MG, QD
     Route: 048
     Dates: start: 20180512
  2. ADEMPAS [Concomitant]
     Active Substance: RIOCIGUAT
     Dosage: UNK, QD
     Dates: start: 2016
  3. LASIX [Concomitant]
     Active Substance: FUROSEMIDE
     Dosage: UNK, BID
  4. COUMADIN [Concomitant]
     Active Substance: WARFARIN SODIUM
     Dosage: 7.5 MG, QD

REACTIONS (7)
  - Decreased appetite [Recovered/Resolved]
  - Weight decreased [Recovered/Resolved]
  - Oxygen saturation decreased [Recovered/Resolved]
  - Loss of consciousness [Recovered/Resolved]
  - Condition aggravated [Unknown]
  - Vomiting [Recovered/Resolved]
  - Abdominal pain upper [Recovered/Resolved]

NARRATIVE: CASE EVENT DATE: 20180512
